FAERS Safety Report 4476731-4 (Version None)
Quarter: 2004Q4

REPORT INFORMATION
  Report Type: 
  Country: None (occurrence: None)
  Receive Date: 20041013
  Receipt Date: 20041001
  Transmission Date: 20050328
  Serious: No
  Sender: FDA-Public Use
  Company Number: USA040567048

PATIENT
  Age: 9 Year
  Sex: Female
  Weight: 78 kg

DRUGS (2)
  1. STRATTERA [Suspect]
     Indication: ATTENTION DEFICIT/HYPERACTIVITY DISORDER
     Dosage: 40 MG DAY
     Dates: start: 20031201, end: 20040506
  2. PRILOSEC (OMEPRAZOLE RATIOPHARM) [Concomitant]

REACTIONS (17)
  - ABDOMINAL PAIN [None]
  - ABDOMINAL PAIN UPPER [None]
  - DYSPEPSIA [None]
  - EAR PAIN [None]
  - EATING DISORDER [None]
  - FAECES DISCOLOURED [None]
  - GASTRITIS [None]
  - GASTRITIS VIRAL [None]
  - GASTROINTESTINAL HAEMORRHAGE [None]
  - IRRITABLE BOWEL SYNDROME [None]
  - LOOSE STOOLS [None]
  - NASAL CONGESTION [None]
  - PHARYNGOLARYNGEAL PAIN [None]
  - PYREXIA [None]
  - SCREAMING [None]
  - VIRAL INFECTION [None]
  - VOMITING [None]
